FAERS Safety Report 9718004 (Version 1)
Quarter: 2013Q4

REPORT INFORMATION
  Report Type: Spontaneous
  Country: US (occurrence: US)
  Receive Date: 20131125
  Receipt Date: 20131125
  Transmission Date: 20140711
  Serious: No
  Sender: FDA-Public Use
  Company Number: US-VIVUS-2013V1000421

PATIENT
  Age: 42 Year
  Sex: Male
  Weight: 85.81 kg

DRUGS (7)
  1. QSYMIA 7.5MG/46MG [Suspect]
     Indication: WEIGHT DECREASED
     Route: 048
     Dates: start: 2013
  2. QSYMIA 3.75MG/23MG [Suspect]
     Indication: WEIGHT DECREASED
     Route: 048
     Dates: start: 2013, end: 201304
  3. ULORIC [Concomitant]
     Indication: GOUT
     Route: 048
     Dates: start: 2012
  4. LISINOPRIL [Concomitant]
     Indication: HYPERTENSION
     Route: 048
  5. PLAVIX [Concomitant]
     Indication: ANTICOAGULANT THERAPY
     Route: 048
     Dates: start: 2010
  6. METOPROLOL [Concomitant]
     Indication: PRODUCT USED FOR UNKNOWN INDICATION
     Route: 048
     Dates: start: 2010
  7. INSULIN HUMULIN R [Concomitant]
     Indication: TYPE 2 DIABETES MELLITUS
     Route: 058
     Dates: start: 2011

REACTIONS (2)
  - Asthenia [Not Recovered/Not Resolved]
  - Fatigue [Not Recovered/Not Resolved]
